FAERS Safety Report 4927831-3 (Version None)
Quarter: 2006Q1

REPORT INFORMATION
  Report Type: 
  Country: None (occurrence: None)
  Receive Date: 20060222
  Receipt Date: 20060210
  Transmission Date: 20060701
  Serious: Yes (Hospitalization, Other)
  Sender: FDA-Public Use
  Company Number: MC200600145

PATIENT
  Age: 66 Year
  Sex: Male
  Weight: 79.8 kg

DRUGS (5)
  1. AGIOMAX (BIVALIRUDIN)INJECTION [Suspect]
     Indication: CORONARY ANGIOPLASTY
     Dosage: SEE IMAGE
     Route: 040
     Dates: start: 20060113, end: 20060131
  2. AGIOMAX (BIVALIRUDIN)INJECTION [Suspect]
     Indication: CORONARY ANGIOPLASTY
     Dosage: SEE IMAGE
     Route: 040
     Dates: start: 20060131, end: 20060131
  3. PLAVIX [Concomitant]
  4. VERESED (MIDAZOLAM HYDROCHLORIDE) [Concomitant]
  5. DILAUDID [Concomitant]

REACTIONS (4)
  - ARTERIOSPASM CORONARY [None]
  - CHEST PAIN [None]
  - COAGULATION TIME ABNORMAL [None]
  - CORONARY ARTERY RESTENOSIS [None]
